FAERS Safety Report 21227783 (Version 5)
Quarter: 2024Q4

REPORT INFORMATION
  Report Type: Spontaneous
  Country: US (occurrence: US)
  Receive Date: 20220818
  Receipt Date: 20241205
  Transmission Date: 20250114
  Serious: No
  Sender: PFIZER
  Company Number: US-PFIZER INC-PV202200045082

PATIENT
  Age: 65 Year
  Sex: Female

DRUGS (2)
  1. IBRANCE [Suspect]
     Active Substance: PALBOCICLIB
     Indication: Breast cancer female
     Dosage: 100 MG
  2. IBRANCE [Suspect]
     Active Substance: PALBOCICLIB
     Dosage: TAKE 1 TABLET BY MOUTH ONCE DAILY, 21 DAYS ON, FOLLOWED BY 7 DAYS OFF. TAKE WITH OR WITHOUT FOOD
     Route: 048

REACTIONS (5)
  - Asthenia [Unknown]
  - Nasopharyngitis [Not Recovered/Not Resolved]
  - Decreased immune responsiveness [Not Recovered/Not Resolved]
  - Feeling abnormal [Unknown]
  - Brain fog [Unknown]

NARRATIVE: CASE EVENT DATE: 20220101
